FAERS Safety Report 5446453-1 (Version None)
Quarter: 2007Q3

REPORT INFORMATION
  Report Type: 
  Country: None (occurrence: None)
  Receive Date: 20070907
  Receipt Date: 20070827
  Transmission Date: 20080115
  Serious: Yes (Hospitalization)
  Sender: FDA-Public Use
  Company Number: US-JNJFOC-20070805586

PATIENT
  Sex: Male
  Weight: 31.7 kg

DRUGS (6)
  1. INFLIXIMAB [Suspect]
     Indication: INFLAMMATORY BOWEL DISEASE
     Dosage: DATES AND DOSE AMOUNTS OF PRIOR INFLIXIMAB INFUSIONS NOT REPORTED
     Route: 042
  2. METHOTREXATE [Concomitant]
     Route: 048
  3. PREDNISONE [Concomitant]
  4. M.V.I. [Concomitant]
     Dosage: 1 TABLET DAILY
     Route: 048
  5. 6MP [Concomitant]
     Dosage: 3 TIMES PER WEEK
  6. CIPRO [Concomitant]

REACTIONS (4)
  - HAEMOGLOBIN DECREASED [None]
  - INTESTINAL STENOSIS [None]
  - MEDICAL DEVICE COMPLICATION [None]
  - SMALL INTESTINAL OBSTRUCTION [None]
